FAERS Safety Report 6056808-2 (Version None)
Quarter: 2009Q1

REPORT INFORMATION
  Report Type: 
  Country: None (occurrence: None)
  Receive Date: 20090126
  Receipt Date: 20090126
  Transmission Date: 20090719
  Serious: Yes (Other)
  Sender: FDA-Public Use
  Company Number: None

PATIENT
  Age: 46 Year
  Sex: Female
  Weight: 68.0396 kg

DRUGS (1)
  1. NEURONTIN [Suspect]
     Indication: COMPLEX REGIONAL PAIN SYNDROME
     Dosage: 3X DAILY PO
     Route: 048
     Dates: start: 20090122, end: 20090123

REACTIONS (5)
  - ABDOMINAL DISCOMFORT [None]
  - DIPLOPIA [None]
  - DIZZINESS [None]
  - DYSURIA [None]
  - VISION BLURRED [None]
